FAERS Safety Report 4711859-2 (Version None)
Quarter: 2005Q2

REPORT INFORMATION
  Report Type: 
  Country: None (occurrence: None)
  Receive Date: 20050629
  Receipt Date: 20050405
  Transmission Date: 20051028
  Serious: No
  Sender: FDA-Public Use
  Company Number: 05P-163-0296317-00

PATIENT
  Age: 69 Year
  Sex: Female
  Weight: 100.5 kg

DRUGS (16)
  1. HUMIRA [Suspect]
     Indication: RHEUMATOID ARTHRITIS
     Dosage: 40 MG, 1 IN 2 WK, SUBCUTANEOUS
     Route: 058
     Dates: start: 20030731
  2. SULFASALAZINE [Concomitant]
  3. GALENIC/BISOPROLOL/HYDROCHLOROTHIAZIDE [Concomitant]
  4. LEVOTHYROXINE SODIUM [Concomitant]
  5. ALPRAZOLAM [Concomitant]
  6. LOVASTATIN [Concomitant]
  7. DICLOSANAC [Concomitant]
  8. ROSIGLITAZONE MALEATE [Concomitant]
  9. FOLIC ACID [Concomitant]
  10. CALCIUM D3 ^STADA^ [Concomitant]
  11. ESOMEPRAZOLE [Concomitant]
  12. INDOCET [Concomitant]
  13. ASPIRIN [Concomitant]
  14. CLOPIDOGREL BISULFATE [Concomitant]
  15. PROPRANOLOL [Concomitant]
  16. FUROSEMIDE [Concomitant]

REACTIONS (1)
  - NERVOUSNESS [None]
